FAERS Safety Report 16353448 (Version 1)
Quarter: 2019Q2

REPORT INFORMATION
  Report Type: Other
  Country: NL (occurrence: NL)
  Receive Date: 20190524
  Receipt Date: 20190524
  Transmission Date: 20190711
  Serious: Yes (Life-Threatening, Hospitalization, Other)
  Sender: FDA-Public Use
  Company Number: NL-APOTEX-2019AP014718

PATIENT
  Age: 51 Year
  Sex: Female

DRUGS (4)
  1. AMLODIPINE [Suspect]
     Active Substance: AMLODIPINE BESYLATE
     Indication: OVERDOSE
  2. PERINDOPRIL/INDAPAMIDE [Suspect]
     Active Substance: INDAPAMIDE\PERINDOPRIL
     Indication: SUICIDE ATTEMPT
     Dosage: 80 DF, UNK (INGESTED 80 TABLETS; INDAPAMIDE: 1.25 MG; PERINDOPRIL: 4 MG;)
     Route: 048
  3. AMLODIPINE [Suspect]
     Active Substance: AMLODIPINE BESYLATE
     Indication: SUICIDE ATTEMPT
     Dosage: 30 DF, UNK
     Route: 048
  4. PERINDOPRIL/INDAPAMIDE [Suspect]
     Active Substance: INDAPAMIDE\PERINDOPRIL
     Indication: OVERDOSE

REACTIONS (9)
  - Shock [Recovering/Resolving]
  - Bradycardia [Recovering/Resolving]
  - Metabolic acidosis [Recovering/Resolving]
  - Suicide attempt [Recovering/Resolving]
  - Toxicity to various agents [Recovering/Resolving]
  - Distributive shock [Recovering/Resolving]
  - Intentional overdose [Unknown]
  - Cardiogenic shock [Recovering/Resolving]
  - Anuria [Recovering/Resolving]
